FAERS Safety Report 4641043-2 (Version None)
Quarter: 2005Q2

REPORT INFORMATION
  Report Type: 
  Country: None (occurrence: None)
  Receive Date: 20050419
  Receipt Date: 20050419
  Transmission Date: 20051028
  Serious: Yes (Hospitalization)
  Sender: FDA-Public Use
  Company Number: None

PATIENT
  Age: 71 Year
  Sex: Male
  Weight: 65.8 kg

DRUGS (17)
  1. WARFARIN [Suspect]
     Indication: ATRIAL FIBRILLATION
     Dosage: VARIOUS, VARIOUS, ORAL
     Route: 048
  2. TERAZOSIN HCL [Concomitant]
  3. MULTIVITAMIN CAP [Concomitant]
  4. SENNOSIDES [Concomitant]
  5. RANITIDINE HCL [Concomitant]
  6. SIMVASTATIN [Concomitant]
  7. METOPROLOL TARTRATE [Concomitant]
  8. LISINOPRIL [Concomitant]
  9. CALCIUM CARBONATE [Concomitant]
  10. ASPIRIN [Concomitant]
  11. DILTIAZEM (INWOOD) [Concomitant]
  12. EPOETIN, ALFA RECOMB [Concomitant]
  13. FERROUS SO4 [Concomitant]
  14. PENTOXIFYLLINE [Concomitant]
  15. FUROSEMIDE [Concomitant]
  16. NITROGLYCERIN [Concomitant]
  17. TERAZOSIN HCL [Concomitant]

REACTIONS (1)
  - INTERNATIONAL NORMALISED RATIO INCREASED [None]
